FAERS Safety Report 21094283 (Version 1)
Quarter: 2022Q3

REPORT INFORMATION
  Report Type: Spontaneous
  Country: RU (occurrence: RU)
  Receive Date: 20220718
  Receipt Date: 20220718
  Transmission Date: 20221027
  Serious: Yes (Life-Threatening, Other)
  Sender: FDA-Public Use
  Company Number: RU-BEH-2022147447

PATIENT
  Age: 68 Year
  Sex: Female
  Weight: 73 kg

DRUGS (5)
  1. ALBUREX [Suspect]
     Active Substance: ALBUMIN HUMAN
     Indication: Immune thrombocytopenia
     Dosage: 20000 MILLIGRAM, OD
     Route: 042
     Dates: start: 20220608, end: 20220609
  2. EXHOL [Concomitant]
     Dosage: 250 MILLIGRAM, TID
     Route: 048
     Dates: start: 20220601
  3. DEXTRIFERRON [Concomitant]
     Active Substance: DEXTRIFERRON
     Dosage: 1 DOSAGE FORM, OD
     Route: 048
     Dates: start: 20220608, end: 20220609
  4. ADEMETIONINE [Concomitant]
     Active Substance: ADEMETIONINE
     Dosage: 400 MILLIGRAM, BID
     Route: 042
     Dates: start: 20220608
  5. OMEPRAZOLE [Concomitant]
     Active Substance: OMEPRAZOLE
     Dosage: 40 MILLIGRAM, BID
     Route: 042
     Dates: start: 20220608

REACTIONS (6)
  - Dyspnoea [Recovered/Resolved]
  - Orthopnoea [Recovered/Resolved]
  - Respiratory rate increased [Recovered/Resolved]
  - Oxygen saturation decreased [Recovered/Resolved]
  - No adverse event [Unknown]
  - Off label use [Unknown]

NARRATIVE: CASE EVENT DATE: 20220609
